FAERS Safety Report 5826717-X (Version None)
Quarter: 2008Q3

REPORT INFORMATION
  Report Type: 
  Country: None (occurrence: None)
  Receive Date: 20080728
  Receipt Date: 20080728
  Transmission Date: 20090109
  Serious: Yes (Hospitalization, Other)
  Sender: FDA-Public Use
  Company Number: None

PATIENT
  Age: 24 Year
  Sex: Female
  Weight: 59 kg

DRUGS (7)
  1. LEVOFLOXACIN [Suspect]
     Indication: URINARY TRACT INFECTION
     Dosage: 500MG DAILY PO
     Route: 048
     Dates: start: 20070721, end: 20070723
  2. MOTRIN [Concomitant]
  3. LEXAPRO [Concomitant]
  4. MACROBID [Concomitant]
  5. LORCET-HD [Concomitant]
  6. FOLIC ACID [Concomitant]
  7. CLARINEX [Concomitant]

REACTIONS (2)
  - GLOSSITIS [None]
  - STOMATITIS [None]
